FAERS Safety Report 5698870-2 (Version None)
Quarter: 2008Q2

REPORT INFORMATION
  Report Type: 
  Country: None (occurrence: None)
  Receive Date: 20080408
  Receipt Date: 20060713
  Transmission Date: 20081010
  Serious: No
  Sender: FDA-Public Use
  Company Number: US-BAYER-US-2006-018887

PATIENT
  Age: 40 Year
  Sex: Female
  Weight: 100 kg

DRUGS (1)
  1. ULTRAVIST (PHARMACY BULK) [Suspect]
     Dosage: UNIT DOSE: 120 ML

REACTIONS (3)
  - EYE PRURITUS [None]
  - PHARYNGOLARYNGEAL DISCOMFORT [None]
  - SNEEZING [None]
